FAERS Safety Report 5586009-3 (Version None)
Quarter: 2008Q1

REPORT INFORMATION
  Report Type: 
  Country: None (occurrence: None)
  Receive Date: 20080104
  Receipt Date: 20071221
  Transmission Date: 20080703
  Serious: Yes (Disabling)
  Sender: FDA-Public Use
  Company Number: US021938

PATIENT
  Age: 36 Year
  Sex: Male

DRUGS (2)
  1. MODIODAL [Suspect]
     Indication: NARCOLEPSY
     Dosage: ORAL
     Route: 048
  2. ANAFRANIL [Suspect]

REACTIONS (2)
  - CHORIORETINITIS [None]
  - DRUG TOXICITY [None]
